FAERS Safety Report 4310358-X (Version None)
Quarter: 2004Q1

REPORT INFORMATION
  Report Type: 
  Country: None (occurrence: None)
  Receive Date: 20040303
  Receipt Date: 20040225
  Transmission Date: 20041129
  Serious: Yes (Hospitalization)
  Sender: FDA-Public Use
  Company Number: US-ROCHE-359912

PATIENT
  Age: 54 Year
  Sex: Male

DRUGS (7)
  1. PEG-INTERFERON ALFA 2A (RO 25-8310) [Suspect]
     Dosage: TAKEN ON A THURSDAY.
     Route: 065
     Dates: start: 20030131, end: 20040205
  2. RIBAVIRIN [Suspect]
     Route: 065
     Dates: start: 20030131, end: 20040205
  3. BLINDED POLYENYLPHOSPHATIDYLCHOLINE [Suspect]
     Dosage: DRUG DESCRIBED AS PPC.
     Route: 065
     Dates: start: 20030131, end: 20040205
  4. NEUPOGEN [Concomitant]
  5. ATENOLOL [Concomitant]
  6. LISINOPRIL [Concomitant]
  7. HYDROCHLOROTHIAZIDE [Concomitant]

REACTIONS (1)
  - CELLULITIS [None]
